FAERS Safety Report 6966101-9 (Version None)
Quarter: 2010Q3

REPORT INFORMATION
  Report Type: 
  Country: None (occurrence: None)
  Receive Date: 20100903
  Receipt Date: 20100823
  Transmission Date: 20110219
  Serious: Yes (Other)
  Sender: FDA-Public Use
  Company Number: PHHY2010MX55750

PATIENT
  Age: 7 Year
  Sex: Male

DRUGS (2)
  1. RITALIN [Suspect]
     Indication: ATTENTION DEFICIT/HYPERACTIVITY DISORDER
     Dosage: 0.5 DF, QD
     Route: 048
     Dates: start: 20100501
  2. RITALIN [Suspect]
     Dosage: 0.25 DF, QD
     Route: 048
     Dates: start: 20100601

REACTIONS (1)
  - ACTIVITIES OF DAILY LIVING IMPAIRED [None]
